FAERS Safety Report 4765565-9 (Version None)
Quarter: 2005Q3

REPORT INFORMATION
  Report Type: 
  Country: None (occurrence: None)
  Receive Date: 20050906
  Receipt Date: 20050822
  Transmission Date: 20060218
  Serious: Yes (Death)
  Sender: FDA-Public Use
  Company Number: JP_050506462

PATIENT
  Age: 26 Year
  Sex: Male
  Weight: 65 kg

DRUGS (5)
  1. ZYPREXA [Suspect]
     Indication: SCHIZOPHRENIA
     Dosage: 10 MG DAY
     Dates: start: 20050422
  2. VITAMIN A [Concomitant]
  3. ROHYPNOL (FLUNITRAZEPAM EG) [Concomitant]
  4. CHLORPROMAZINE [Concomitant]
  5. NELUROLEN (NITRAZEPAM) [Concomitant]

REACTIONS (9)
  - ANGIOPATHY [None]
  - CARDIO-RESPIRATORY ARREST [None]
  - CARDIOMEGALY [None]
  - DYSPHAGIA [None]
  - HYPERTENSIVE HEART DISEASE [None]
  - MULTI-ORGAN DISORDER [None]
  - PETECHIAE [None]
  - PSYCHOMOTOR HYPERACTIVITY [None]
  - PULMONARY OEDEMA [None]
